FAERS Safety Report 7833446-X (Version None)
Quarter: 2011Q4

REPORT INFORMATION
  Report Type: 
  Country: None (occurrence: None)
  Receive Date: 20111024
  Receipt Date: 20100810
  Transmission Date: 20120403
  Serious: No
  Sender: FDA-Public Use
  Company Number: US-BAYER-201030319NA

PATIENT
  Age: 70 Year
  Sex: Female

DRUGS (12)
  1. CARAFATE [Concomitant]
     Indication: ABDOMINAL DISCOMFORT
     Dosage: UNK, QID
  2. VALIUM [Concomitant]
     Dosage: 5 MG, BID
  3. MYCIN DRUGS [Suspect]
  4. UNKNOWN CHEMOTHERAPY MEDICATION [Suspect]
  5. NASAL INHALERS [Concomitant]
  6. PENICILLIN [Suspect]
  7. CEFTIN [Suspect]
  8. LEVAQUIN [Suspect]
  9. CHOLESTEROL PILL [Concomitant]
  10. SINGULAIR [Concomitant]
  11. CIPROFLOXACIN [Suspect]
  12. SYNTAX [Concomitant]
     Dosage: 300 MG, HS

REACTIONS (1)
  - GASTRITIS [None]
